FAERS Safety Report 7414424 (Version 2)
Quarter: 2013Q1

REPORT INFORMATION
  Report Type: Report from Study
  Country: DE (occurrence: DE)
  Receive Date: 20100609
  Receipt Date: 20130327
  Transmission Date: 20140127
  Serious: Yes (Hospitalization)
  Sender: FDA-Public Use
  Company Number: PHHO2010DE08445

PATIENT
  Sex: Male
  Weight: 78 kg

DRUGS (1)
  1. AMN107 [Suspect]
     Indication: HYPEREOSINOPHILIC SYNDROME
     Dosage: 400 MG, BID
     Route: 048
     Dates: start: 20080813

REACTIONS (1)
  - Peripheral arterial occlusive disease [Recovered/Resolved]
